FAERS Safety Report 6554507-1 (Version None)
Quarter: 2010Q1

REPORT INFORMATION
  Report Type: 
  Country: None (occurrence: None)
  Receive Date: 20100127
  Receipt Date: 20100114
  Transmission Date: 20100710
  Serious: Yes (Other)
  Sender: FDA-Public Use
  Company Number: PHHY2010CH01966

PATIENT
  Age: 10 Year
  Sex: Male

DRUGS (1)
  1. RITALIN LA [Suspect]
     Dosage: 20 MG DAILY
     Dates: start: 20070701, end: 20091201

REACTIONS (5)
  - ANXIETY [None]
  - HEADACHE [None]
  - NEGATIVE THOUGHTS [None]
  - PANIC ATTACK [None]
  - TACHYCARDIA [None]
